FAERS Safety Report 25822982 (Version 1)
Quarter: 2025Q3

REPORT INFORMATION
  Report Type: Report from Study
  Country: AU (occurrence: AU)
  Receive Date: 20250919
  Receipt Date: 20250919
  Transmission Date: 20251021
  Serious: Yes (Death)
  Sender: AMGEN
  Company Number: AU-AMGEN-AUSNI2025187870

PATIENT
  Sex: Female

DRUGS (1)
  1. TARLATAMAB [Suspect]
     Active Substance: TARLATAMAB
     Indication: Small cell lung cancer
     Route: 065

REACTIONS (1)
  - Death [Fatal]
